FAERS Safety Report 20656138 (Version 2)
Quarter: 2022Q2

REPORT INFORMATION
  Report Type: Spontaneous
  Country: US (occurrence: None)
  Receive Date: 20220330
  Receipt Date: 20220527
  Transmission Date: 20220720
  Serious: Yes (Death, Life-Threatening, Hospitalization, Disabling, Other)
  Sender: FDA-Public Use
  Company Number: 2022A130591

PATIENT
  Age: 22198 Day
  Sex: Male
  Weight: 74.8 kg

DRUGS (3)
  1. BYDUREON [Suspect]
     Active Substance: EXENATIDE
     Indication: Type 2 diabetes mellitus
     Dosage: INJECT 1 SYR 2 MG
     Route: 065
     Dates: start: 20210822
  2. TRULICITY [Concomitant]
     Active Substance: DULAGLUTIDE
     Route: 065
  3. ATENOLOL [Concomitant]
     Active Substance: ATENOLOL
     Dosage: 10.0MG UNKNOWN
     Route: 065

REACTIONS (7)
  - Illness [Fatal]
  - Blood glucose increased [Fatal]
  - Hypotension [Fatal]
  - Lactic acidosis [Fatal]
  - Cardiogenic shock [Fatal]
  - Septic shock [Fatal]
  - Quality of life decreased [Unknown]

NARRATIVE: CASE EVENT DATE: 20210827
